FAERS Safety Report 10089693 (Version 1)
Quarter: 2014Q2

REPORT INFORMATION
  Report Type: Spontaneous
  Country: US (occurrence: None)
  Receive Date: 20140418
  Receipt Date: 20140418
  Transmission Date: 20141212
  Serious: Yes (Hospitalization)
  Sender: FDA-Public Use
  Company Number: None

PATIENT
  Age: 67 Year
  Sex: Female
  Weight: 68.8 kg

DRUGS (1)
  1. EXPAREL [Suspect]
     Indication: JOINT ARTHROPLASTY
     Dosage: 266 MG INFILTRATION
     Dates: start: 20140415

REACTIONS (1)
  - Extrasystoles [None]
